FAERS Safety Report 10015998 (Version 1)
Quarter: 2014Q1

REPORT INFORMATION
  Report Type: Spontaneous
  Country: FR (occurrence: FR)
  Receive Date: 20140317
  Receipt Date: 20140317
  Transmission Date: 20141002
  Serious: Yes (Hospitalization)
  Sender: FDA-Public Use
  Company Number: PHHY2014FR031639

PATIENT
  Age: 46 Year
  Sex: Male

DRUGS (3)
  1. ESIDREX [Suspect]
     Indication: HYPERTENSION
     Dosage: 25 MG, QD
     Route: 048
     Dates: end: 201307
  2. FOSINOPRIL [Suspect]
     Indication: HYPERTENSION
     Dosage: 1 DF, QD
     Route: 048
     Dates: end: 201307
  3. BISOPROLOL [Concomitant]
     Dosage: 10 MG, QD

REACTIONS (1)
  - Renal failure acute [Recovered/Resolved]
